FAERS Safety Report 8170430-3 (Version None)
Quarter: 2012Q1

REPORT INFORMATION
  Report Type: 
  Country: None (occurrence: None)
  Receive Date: 20120104
  Receipt Date: 20111111
  Transmission Date: 20120608
  Serious: No
  Sender: FDA-Public Use
  Company Number: 2011HGS-002781

PATIENT
  Age: 35 Year
  Sex: Female
  Weight: 68.4932 kg

DRUGS (13)
  1. HCTZ(HYDROCHLOROTHIAZIDE)(HYDROCHLOROTHIAZIDE) [Concomitant]
  2. POTASSIUM ER(POTASSIUM) (POTASSIUM) [Concomitant]
  3. CARAFATE(SUCRALFATE) (SUCRALFATE) [Concomitant]
  4. ABILIFY(ARIPIPRAZOLE)(ARIPIPRAZOLE) [Concomitant]
  5. PRESTIQUE(ANTIDEPRESSANTS) (DESVENLAFAXINE) [Concomitant]
  6. TRAMADOL HCL [Concomitant]
  7. LOPID [Concomitant]
  8. FOLIC ACID [Concomitant]
  9. PREMARIN(ESTROGENS CONJUGATED)(ESTROGENS CONJUGATED) [Concomitant]
  10. XANAX [Concomitant]
  11. OMEPRAZOLE [Concomitant]
  12. BENLYSTA [Suspect]
     Indication: SYSTEMIC LUPUS ERYTHEMATOSUS
     Dosage: 640 MG, 1 IN 28 D, INTRAVENOUS DRIP
     Route: 041
     Dates: start: 20110923
  13. PREDNISONE [Concomitant]

REACTIONS (2)
  - PRURITUS [None]
  - NAUSEA [None]
